FAERS Safety Report 24251895 (Version 2)
Quarter: 2025Q3

REPORT INFORMATION
  Report Type: Spontaneous
  Country: CA (occurrence: CA)
  Receive Date: 20240827
  Receipt Date: 20250922
  Transmission Date: 20251020
  Serious: Yes (Death, Life-Threatening, Hospitalization, Disabling, Congenital Anomaly, Other)
  Sender: Haleon PLC
  Company Number: CA-002147023-NVSC2024CA167865

PATIENT
  Age: 43 Year
  Sex: Female
  Weight: 97 kg

DRUGS (244)
  1. VOLTAREN [Suspect]
     Active Substance: DICLOFENAC SODIUM
     Indication: Product used for unknown indication
  2. VOLTAREN [Suspect]
     Active Substance: DICLOFENAC SODIUM
  3. DICLOFENAC SODIUM [Suspect]
     Active Substance: DICLOFENAC SODIUM
     Indication: Product used for unknown indication
  4. CORTISONE ACETATE [Suspect]
     Active Substance: CORTISONE ACETATE
     Indication: Rheumatoid arthritis
  5. CORTISONE ACETATE [Suspect]
     Active Substance: CORTISONE ACETATE
  6. DESOXIMETASONE [Suspect]
     Active Substance: DESOXIMETASONE
     Indication: Rheumatoid arthritis
  7. DESOXIMETASONE [Suspect]
     Active Substance: DESOXIMETASONE
     Route: 048
  8. DESOXIMETASONE [Suspect]
     Active Substance: DESOXIMETASONE
     Route: 048
  9. DOXYCYCLINE HYCLATE [Suspect]
     Active Substance: DOXYCYCLINE HYCLATE
     Indication: Product used for unknown indication
  10. SULFISOMIDINE SODIUM [Suspect]
     Active Substance: SULFISOMIDINE SODIUM
     Indication: Rheumatoid arthritis
  11. SULFISOMIDINE SODIUM [Suspect]
     Active Substance: SULFISOMIDINE SODIUM
  12. ENBREL [Suspect]
     Active Substance: ETANERCEPT
     Indication: Rheumatoid arthritis
     Route: 058
  13. ENBREL [Suspect]
     Active Substance: ETANERCEPT
     Indication: Psoriatic arthropathy
     Route: 058
  14. ENBREL [Suspect]
     Active Substance: ETANERCEPT
     Route: 058
  15. ENBREL [Suspect]
     Active Substance: ETANERCEPT
     Route: 058
  16. ERELZI [Suspect]
     Active Substance: ETANERCEPT-SZZS
     Indication: Rheumatoid arthritis
  17. ERELZI [Suspect]
     Active Substance: ETANERCEPT-SZZS
  18. ERELZI [Suspect]
     Active Substance: ETANERCEPT-SZZS
     Route: 058
  19. FOLIC ACID [Suspect]
     Active Substance: FOLIC ACID
     Indication: Rheumatoid arthritis
  20. FOLIC ACID [Suspect]
     Active Substance: FOLIC ACID
  21. FOLIC ACID [Suspect]
     Active Substance: FOLIC ACID
  22. FOLIC ACID [Suspect]
     Active Substance: FOLIC ACID
  23. FOLIC ACID [Suspect]
     Active Substance: FOLIC ACID
  24. FOLIC ACID [Suspect]
     Active Substance: FOLIC ACID
  25. FOLIC ACID [Suspect]
     Active Substance: FOLIC ACID
  26. FOLIC ACID [Suspect]
     Active Substance: FOLIC ACID
  27. FOLIC ACID [Suspect]
     Active Substance: FOLIC ACID
  28. FOSAMAX [Suspect]
     Active Substance: ALENDRONATE SODIUM
     Indication: Rheumatoid arthritis
  29. FRAMYCETIN SULFATE [Suspect]
     Active Substance: FRAMYCETIN SULFATE
     Indication: Rheumatoid arthritis
  30. HYDROXYCHLOROQUINE [Suspect]
     Active Substance: HYDROXYCHLOROQUINE
     Indication: Systemic lupus erythematosus
     Dosage: 400 MG QD
  31. HYDROXYCHLOROQUINE [Suspect]
     Active Substance: HYDROXYCHLOROQUINE
     Indication: Rheumatoid arthritis
     Dosage: 400 MG QD
  32. HYDROXYCHLOROQUINE [Suspect]
     Active Substance: HYDROXYCHLOROQUINE
  33. HYDROXYCHLOROQUINE [Suspect]
     Active Substance: HYDROXYCHLOROQUINE
  34. HYDROXYCHLOROQUINE SULFATE [Suspect]
     Active Substance: HYDROXYCHLOROQUINE SULFATE
     Indication: Rheumatoid arthritis
     Dosage: 400MG QD
  35. HYDROXYCHLOROQUINE SULFATE [Suspect]
     Active Substance: HYDROXYCHLOROQUINE SULFATE
     Dosage: 400 MG QD
  36. HYDROXYCHLOROQUINE SULFATE [Suspect]
     Active Substance: HYDROXYCHLOROQUINE SULFATE
     Dosage: 400 MG QD
  37. HYDROXYCHLOROQUINE SULFATE [Suspect]
     Active Substance: HYDROXYCHLOROQUINE SULFATE
  38. LEFLUNOMIDE [Suspect]
     Active Substance: LEFLUNOMIDE
     Indication: Rheumatoid arthritis
  39. LEFLUNOMIDE [Suspect]
     Active Substance: LEFLUNOMIDE
     Route: 048
  40. LEFLUNOMIDE [Suspect]
     Active Substance: LEFLUNOMIDE
     Route: 048
  41. LEFLUNOMIDE [Suspect]
     Active Substance: LEFLUNOMIDE
     Route: 048
  42. FLUMETHASONE PIVALATE [Suspect]
     Active Substance: FLUMETHASONE PIVALATE
     Indication: Product used for unknown indication
  43. LYRICA [Suspect]
     Active Substance: PREGABALIN
     Indication: Fibromyalgia
  44. METHOTREXATE [Suspect]
     Active Substance: METHOTREXATE
     Indication: Rheumatoid arthritis
     Route: 048
  45. METHOTREXATE [Suspect]
     Active Substance: METHOTREXATE
     Route: 048
  46. METHOTREXATE [Suspect]
     Active Substance: METHOTREXATE
     Route: 048
  47. METHOTREXATE [Suspect]
     Active Substance: METHOTREXATE
     Route: 048
  48. METHOTREXATE [Suspect]
     Active Substance: METHOTREXATE
  49. METHOTREXATE [Suspect]
     Active Substance: METHOTREXATE
     Dosage: 20MG QD
  50. METHOTREXATE [Suspect]
     Active Substance: METHOTREXATE
  51. METHOTREXATE [Suspect]
     Active Substance: METHOTREXATE
     Route: 048
  52. METHOTREXATE [Suspect]
     Active Substance: METHOTREXATE
     Route: 048
  53. METHOTREXATE [Suspect]
     Active Substance: METHOTREXATE
     Route: 048
  54. METHOTREXATE [Suspect]
     Active Substance: METHOTREXATE
     Route: 048
  55. METHOTREXATE [Suspect]
     Active Substance: METHOTREXATE
     Route: 058
  56. METHOTREXATE [Suspect]
     Active Substance: METHOTREXATE
  57. MINOCYCLINE [Suspect]
     Active Substance: MINOCYCLINE HYDROCHLORIDE
     Indication: Rheumatoid arthritis
  58. MORPHINE SULFATE [Suspect]
     Active Substance: MORPHINE SULFATE
     Indication: Rheumatoid arthritis
  59. MYCOPHENOLATE MOFETIL [Suspect]
     Active Substance: MYCOPHENOLATE MOFETIL
     Indication: Product used for unknown indication
  60. NAPROXEN SODIUM [Suspect]
     Active Substance: NAPROXEN SODIUM
     Indication: Rheumatoid arthritis
  61. NAPROXEN SODIUM [Suspect]
     Active Substance: NAPROXEN SODIUM
     Indication: Headache
  62. NAPROXEN SODIUM [Suspect]
     Active Substance: NAPROXEN SODIUM
     Dosage: 500MG BID
  63. NAPROXEN SODIUM [Suspect]
     Active Substance: NAPROXEN SODIUM
     Dosage: 500MG BID
  64. NEOMYCIN [Suspect]
     Active Substance: NEOMYCIN
     Indication: Rheumatoid arthritis
     Route: 048
  65. NEOMYCIN [Suspect]
     Active Substance: NEOMYCIN
  66. NITROFURAZONE [Suspect]
     Active Substance: NITROFURAZONE
     Indication: Rheumatoid arthritis
     Route: 048
  67. NITROFURAZONE [Suspect]
     Active Substance: NITROFURAZONE
  68. ORENCIA [Suspect]
     Active Substance: ABATACEPT
     Indication: Rheumatoid arthritis
     Route: 042
  69. OTEZLA [Suspect]
     Active Substance: APREMILAST
     Indication: Product used for unknown indication
     Dosage: 3MG BID
  70. OTEZLA [Suspect]
     Active Substance: APREMILAST
     Dosage: 3MG BID
  71. OTEZLA [Suspect]
     Active Substance: APREMILAST
     Dosage: 3MG BID
     Route: 048
  72. OTEZLA [Suspect]
     Active Substance: APREMILAST
  73. OTEZLA [Suspect]
     Active Substance: APREMILAST
  74. OTEZLA [Suspect]
     Active Substance: APREMILAST
     Route: 048
  75. OXYCODONE HYDROCHLORIDE [Suspect]
     Active Substance: OXYCODONE HYDROCHLORIDE
     Indication: Product used for unknown indication
  76. OXYCODONE HYDROCHLORIDE [Suspect]
     Active Substance: OXYCODONE HYDROCHLORIDE
  77. PARA-AMINOSALICYLIC ACID [Suspect]
     Active Substance: AMINOSALICYLIC ACID
     Indication: Product used for unknown indication
  78. PREDNISONE [Suspect]
     Active Substance: PREDNISONE
     Indication: Rheumatoid arthritis
     Route: 048
  79. PREDNISONE [Suspect]
     Active Substance: PREDNISONE
     Indication: Condition aggravated
     Route: 048
  80. PREDNISONE [Suspect]
     Active Substance: PREDNISONE
     Route: 048
  81. PREDNISONE [Suspect]
     Active Substance: PREDNISONE
     Route: 048
  82. PREDNISONE [Suspect]
     Active Substance: PREDNISONE
     Route: 048
  83. PREDNISONE [Suspect]
     Active Substance: PREDNISONE
     Route: 048
  84. PREDNISONE [Suspect]
     Active Substance: PREDNISONE
  85. QUETIAPINE FUMARATE [Suspect]
     Active Substance: QUETIAPINE FUMARATE
     Indication: Product used for unknown indication
  86. QUETIAPINE FUMARATE [Suspect]
     Active Substance: QUETIAPINE FUMARATE
  87. RAMIPRIL [Suspect]
     Active Substance: RAMIPRIL
     Indication: Product used for unknown indication
  88. RAMIPRIL [Suspect]
     Active Substance: RAMIPRIL
  89. CETIRIZINE HYDROCHLORIDE [Suspect]
     Active Substance: CETIRIZINE HYDROCHLORIDE
     Indication: Rheumatoid arthritis
  90. CETIRIZINE HYDROCHLORIDE [Suspect]
     Active Substance: CETIRIZINE HYDROCHLORIDE
  91. CETIRIZINE HYDROCHLORIDE [Suspect]
     Active Substance: CETIRIZINE HYDROCHLORIDE
  92. CETIRIZINE HYDROCHLORIDE [Suspect]
     Active Substance: CETIRIZINE HYDROCHLORIDE
  93. CETIRIZINE HYDROCHLORIDE [Suspect]
     Active Substance: CETIRIZINE HYDROCHLORIDE
  94. CETIRIZINE HYDROCHLORIDE [Suspect]
     Active Substance: CETIRIZINE HYDROCHLORIDE
  95. CETIRIZINE HYDROCHLORIDE [Suspect]
     Active Substance: CETIRIZINE HYDROCHLORIDE
  96. CETIRIZINE HYDROCHLORIDE\PSEUDOEPHEDRINE HYDROCHLORIDE [Suspect]
     Active Substance: CETIRIZINE HYDROCHLORIDE\PSEUDOEPHEDRINE HYDROCHLORIDE
     Indication: Rheumatoid arthritis
  97. CETIRIZINE HYDROCHLORIDE\PSEUDOEPHEDRINE HYDROCHLORIDE [Suspect]
     Active Substance: CETIRIZINE HYDROCHLORIDE\PSEUDOEPHEDRINE HYDROCHLORIDE
  98. CETIRIZINE HYDROCHLORIDE\PSEUDOEPHEDRINE HYDROCHLORIDE [Suspect]
     Active Substance: CETIRIZINE HYDROCHLORIDE\PSEUDOEPHEDRINE HYDROCHLORIDE
  99. CETIRIZINE HYDROCHLORIDE\PSEUDOEPHEDRINE HYDROCHLORIDE [Suspect]
     Active Substance: CETIRIZINE HYDROCHLORIDE\PSEUDOEPHEDRINE HYDROCHLORIDE
  100. THYMOL [Suspect]
     Active Substance: THYMOL
     Indication: Rheumatoid arthritis
     Route: 048
  101. THYMOL [Suspect]
     Active Substance: THYMOL
     Route: 048
  102. TOFACITINIB [Suspect]
     Active Substance: TOFACITINIB
     Indication: Product used for unknown indication
     Dosage: 5MG BID
  103. TOFACITINIB [Suspect]
     Active Substance: TOFACITINIB
     Dosage: 5MG BID
  104. TRAMADOL HYDROCHLORIDE [Suspect]
     Active Substance: TRAMADOL HYDROCHLORIDE
     Indication: Product used for unknown indication
  105. TRICLOSAN [Suspect]
     Active Substance: TRICLOSAN
     Indication: Product used for unknown indication
  106. STELARA [Suspect]
     Active Substance: USTEKINUMAB
     Indication: Rheumatoid arthritis
     Route: 058
  107. STELARA [Suspect]
     Active Substance: USTEKINUMAB
     Route: 058
  108. STELARA [Suspect]
     Active Substance: USTEKINUMAB
     Route: 058
  109. STELARA [Suspect]
     Active Substance: USTEKINUMAB
  110. STELARA [Suspect]
     Active Substance: USTEKINUMAB
  111. STELARA [Suspect]
     Active Substance: USTEKINUMAB
     Route: 042
  112. STELARA [Suspect]
     Active Substance: USTEKINUMAB
     Route: 042
  113. STELARA [Suspect]
     Active Substance: USTEKINUMAB
     Route: 042
  114. VITAMIN B12 [Suspect]
     Active Substance: CYANOCOBALAMIN
     Indication: Rheumatoid arthritis
  115. VITAMIN B12 [Suspect]
     Active Substance: CYANOCOBALAMIN
  116. PREDNISONE [Suspect]
     Active Substance: PREDNISONE
     Indication: Rheumatoid arthritis
  117. XELJANZ [Suspect]
     Active Substance: TOFACITINIB CITRATE
     Indication: Rheumatoid arthritis
  118. XELJANZ [Suspect]
     Active Substance: TOFACITINIB CITRATE
  119. XELJANZ [Suspect]
     Active Substance: TOFACITINIB CITRATE
  120. ICOSAPENT [Concomitant]
     Active Substance: ICOSAPENT
     Indication: Product used for unknown indication
  121. DICLOFENAC SODIUM [Suspect]
     Active Substance: DICLOFENAC SODIUM
     Indication: Product used for unknown indication
  122. DICLOFENAC SODIUM [Suspect]
     Active Substance: DICLOFENAC SODIUM
  123. DICLOFENAC SODIUM [Suspect]
     Active Substance: DICLOFENAC SODIUM
  124. DICLOFENAC SODIUM [Suspect]
     Active Substance: DICLOFENAC SODIUM
  125. DICLOFENAC SODIUM [Suspect]
     Active Substance: DICLOFENAC SODIUM
  126. CHOLECALCIFEROL [Suspect]
     Active Substance: CHOLECALCIFEROL
     Indication: Rheumatoid arthritis
     Route: 016
  127. CHOLECALCIFEROL [Suspect]
     Active Substance: CHOLECALCIFEROL
     Route: 016
  128. CETIRIZINE HYDROCHLORIDE [Suspect]
     Active Substance: CETIRIZINE HYDROCHLORIDE
     Indication: Rheumatoid arthritis
  129. CETIRIZINE HYDROCHLORIDE [Suspect]
     Active Substance: CETIRIZINE HYDROCHLORIDE
  130. CETIRIZINE HYDROCHLORIDE [Suspect]
     Active Substance: CETIRIZINE HYDROCHLORIDE
  131. CETIRIZINE HYDROCHLORIDE [Suspect]
     Active Substance: CETIRIZINE HYDROCHLORIDE
  132. CETIRIZINE HYDROCHLORIDE [Suspect]
     Active Substance: CETIRIZINE HYDROCHLORIDE
  133. CETIRIZINE HYDROCHLORIDE [Suspect]
     Active Substance: CETIRIZINE HYDROCHLORIDE
  134. CETIRIZINE HYDROCHLORIDE [Suspect]
     Active Substance: CETIRIZINE HYDROCHLORIDE
  135. DICLOFENAC POTASSIUM [Suspect]
     Active Substance: DICLOFENAC POTASSIUM
     Indication: Product used for unknown indication
  136. DICLOFENAC POTASSIUM [Suspect]
     Active Substance: DICLOFENAC POTASSIUM
  137. PANTOPRAZOLE SODIUM [Suspect]
     Active Substance: PANTOPRAZOLE SODIUM
     Indication: Product used for unknown indication
  138. PANTOPRAZOLE SODIUM [Suspect]
     Active Substance: PANTOPRAZOLE SODIUM
     Indication: Dyspepsia
  139. PANTOPRAZOLE SODIUM [Suspect]
     Active Substance: PANTOPRAZOLE SODIUM
  140. PANTOPRAZOLE SODIUM [Suspect]
     Active Substance: PANTOPRAZOLE SODIUM
  141. PANTOPRAZOLE SODIUM [Suspect]
     Active Substance: PANTOPRAZOLE SODIUM
  142. PANTOPRAZOLE SODIUM [Suspect]
     Active Substance: PANTOPRAZOLE SODIUM
  143. LORAZEPAM [Suspect]
     Active Substance: LORAZEPAM
     Indication: Product used for unknown indication
  144. LORAZEPAM [Suspect]
     Active Substance: LORAZEPAM
  145. DIPHENHYDRAMINE HYDROCHLORIDE [Suspect]
     Active Substance: DIPHENHYDRAMINE HYDROCHLORIDE
     Indication: Rheumatoid arthritis
  146. DIPHENHYDRAMINE HYDROCHLORIDE [Suspect]
     Active Substance: DIPHENHYDRAMINE HYDROCHLORIDE
  147. CALTRATE [Suspect]
     Active Substance: CALCIUM CARBONATE
     Indication: Product used for unknown indication
  148. TUMS ULTRA [Suspect]
     Active Substance: CALCIUM CARBONATE
     Indication: Product used for unknown indication
  149. TUMS ULTRA [Suspect]
     Active Substance: CALCIUM CARBONATE
  150. ACETAMINOPHEN [Suspect]
     Active Substance: ACETAMINOPHEN
     Indication: Rheumatoid arthritis
  151. PSEUDOEPHEDRINE HYDROCHLORIDE [Suspect]
     Active Substance: PSEUDOEPHEDRINE HYDROCHLORIDE
     Indication: Rheumatoid arthritis
  152. PSEUDOEPHEDRINE HYDROCHLORIDE [Suspect]
     Active Substance: PSEUDOEPHEDRINE HYDROCHLORIDE
  153. VITAMIN C [Suspect]
     Active Substance: ASCORBIC ACID
     Indication: Product used for unknown indication
  154. PHTHALYLSULFATHIAZOLE [Suspect]
     Active Substance: PHTHALYLSULFATHIAZOLE
     Indication: Rheumatoid arthritis
  155. PHTHALYLSULFATHIAZOLE [Suspect]
     Active Substance: PHTHALYLSULFATHIAZOLE
  156. HYDROCORTISONE [Suspect]
     Active Substance: HYDROCORTISONE
     Indication: Rheumatoid arthritis
  157. HYDROCORTISONE [Suspect]
     Active Substance: HYDROCORTISONE
     Route: 048
  158. HYDROCORTISONE [Suspect]
     Active Substance: HYDROCORTISONE
  159. COSENTYX [Suspect]
     Active Substance: SECUKINUMAB
     Indication: Psoriatic arthropathy
  160. COSENTYX [Suspect]
     Active Substance: SECUKINUMAB
  161. ACTEMRA [Suspect]
     Active Substance: TOCILIZUMAB
     Indication: Rheumatoid arthritis
     Route: 058
  162. ACTEMRA [Suspect]
     Active Substance: TOCILIZUMAB
     Route: 058
  163. ACTEMRA [Suspect]
     Active Substance: TOCILIZUMAB
     Route: 058
  164. ACTEMRA [Suspect]
     Active Substance: TOCILIZUMAB
     Route: 058
  165. ACTEMRA [Suspect]
     Active Substance: TOCILIZUMAB
     Route: 058
  166. ACTEMRA [Suspect]
     Active Substance: TOCILIZUMAB
     Route: 016
  167. ACTEMRA [Suspect]
     Active Substance: TOCILIZUMAB
     Route: 016
  168. ADALIMUMAB [Suspect]
     Active Substance: ADALIMUMAB
     Indication: Rheumatoid arthritis
     Route: 058
  169. ALENDRONIC ACID [Suspect]
     Active Substance: ALENDRONIC ACID
     Indication: Rheumatoid arthritis
  170. ALENDRONIC ACID [Suspect]
     Active Substance: ALENDRONIC ACID
     Route: 048
  171. ALENDRONIC ACID [Suspect]
     Active Substance: ALENDRONIC ACID
  172. PREDNISONE [Suspect]
     Active Substance: PREDNISONE
     Indication: Rheumatoid arthritis
  173. ARAVA [Suspect]
     Active Substance: LEFLUNOMIDE
     Indication: Rheumatoid arthritis
  174. ASACOL [Suspect]
     Active Substance: MESALAMINE
     Indication: Crohn^s disease
  175. AZATHIOPRINE [Suspect]
     Active Substance: AZATHIOPRINE
     Indication: Rheumatoid arthritis
  176. BUPIVACAINE HYDROCHLORIDE [Suspect]
     Active Substance: BUPIVACAINE HYDROCHLORIDE
     Indication: Rheumatoid arthritis
  177. CALCIUM CITRATE [Suspect]
     Active Substance: CALCIUM CITRATE
     Indication: Product used for unknown indication
  178. CALCIUM GLUBIONATE [Suspect]
     Active Substance: CALCIUM GLUBIONATE
     Indication: Product used for unknown indication
  179. CALCIUM GLUBIONATE [Suspect]
     Active Substance: CALCIUM GLUBIONATE
  180. CELEBREX [Suspect]
     Active Substance: CELECOXIB
     Indication: Rheumatoid arthritis
  181. CELEBREX [Suspect]
     Active Substance: CELECOXIB
  182. CELECOXIB [Suspect]
     Active Substance: CELECOXIB
     Indication: Rheumatoid arthritis
  183. CHLORAPREP [Suspect]
     Active Substance: CHLORHEXIDINE GLUCONATE\ISOPROPYL ALCOHOL
     Indication: Rheumatoid arthritis
  184. CHLORHEXIDINE GLUCONATE [Suspect]
     Active Substance: CHLORHEXIDINE GLUCONATE
     Indication: Product used for unknown indication
  185. CHLORHEXIDINE GLUCONATE [Suspect]
     Active Substance: CHLORHEXIDINE GLUCONATE
  186. CHLORHEXIDINE GLUCONATE [Suspect]
     Active Substance: CHLORHEXIDINE GLUCONATE
  187. CHLORHEXIDINE GLUCONATE [Suspect]
     Active Substance: CHLORHEXIDINE GLUCONATE
  188. CHLORHEXIDINE GLUCONATE APPLICATOR [Suspect]
     Active Substance: CHLORHEXIDINE GLUCONATE\ISOPROPYL ALCOHOL
     Indication: Product used for unknown indication
     Route: 002
  189. CIMZIA [Suspect]
     Active Substance: CERTOLIZUMAB PEGOL
     Indication: Rheumatoid arthritis
     Route: 058
  190. CIMZIA [Suspect]
     Active Substance: CERTOLIZUMAB PEGOL
     Indication: Psoriasis
     Route: 058
  191. CIMZIA [Suspect]
     Active Substance: CERTOLIZUMAB PEGOL
  192. CIMZIA [Suspect]
     Active Substance: CERTOLIZUMAB PEGOL
  193. CIMZIA [Suspect]
     Active Substance: CERTOLIZUMAB PEGOL
     Route: 058
  194. CLONIDINE [Suspect]
     Active Substance: CLONIDINE
     Indication: Rheumatoid arthritis
  195. GRAMICIDIN [Suspect]
     Active Substance: GRAMICIDIN
     Indication: Rheumatoid arthritis
  196. HUMIRA [Suspect]
     Active Substance: ADALIMUMAB
     Indication: Rheumatoid arthritis
     Route: 058
  197. HUMIRA [Suspect]
     Active Substance: ADALIMUMAB
     Route: 058
  198. HUMIRA [Suspect]
     Active Substance: ADALIMUMAB
     Route: 058
  199. HUMIRA [Suspect]
     Active Substance: ADALIMUMAB
     Route: 058
  200. HYALURONIDASE [Suspect]
     Active Substance: HYALURONIDASE
     Indication: Rheumatoid arthritis
  201. OXYCODONE TEREPHTHALATE [Suspect]
     Active Substance: OXYCODONE TEREPHTHALATE
     Indication: Product used for unknown indication
  202. REMICADE [Suspect]
     Active Substance: INFLIXIMAB
     Indication: Rheumatoid arthritis
     Route: 042
  203. REMICADE [Suspect]
     Active Substance: INFLIXIMAB
     Route: 042
  204. REMICADE [Suspect]
     Active Substance: INFLIXIMAB
     Route: 042
  205. REMICADE [Suspect]
     Active Substance: INFLIXIMAB
     Route: 042
  206. REMICADE [Suspect]
     Active Substance: INFLIXIMAB
     Route: 042
  207. REMICADE [Suspect]
     Active Substance: INFLIXIMAB
     Route: 042
  208. REMICADE [Suspect]
     Active Substance: INFLIXIMAB
     Route: 042
  209. RITUXIMAB [Suspect]
     Active Substance: RITUXIMAB
     Indication: Rheumatoid arthritis
     Route: 048
  210. RITUXIMAB [Suspect]
     Active Substance: RITUXIMAB
     Route: 048
  211. RITUXIMAB [Suspect]
     Active Substance: RITUXIMAB
     Route: 048
  212. RITUXIMAB [Suspect]
     Active Substance: RITUXIMAB
     Route: 058
  213. RITUXIMAB [Suspect]
     Active Substance: RITUXIMAB
     Route: 042
  214. SALICYLIC ACID [Suspect]
     Active Substance: SALICYLIC ACID
     Indication: Product used for unknown indication
  215. SIMPONI [Suspect]
     Active Substance: GOLIMUMAB
     Indication: Rheumatoid arthritis
     Route: 058
  216. SIMPONI [Suspect]
     Active Substance: GOLIMUMAB
     Route: 058
  217. SIMPONI [Suspect]
     Active Substance: GOLIMUMAB
     Route: 058
  218. SIMPONI [Suspect]
     Active Substance: GOLIMUMAB
     Route: 058
  219. SODIUM FLUORIDE [Suspect]
     Active Substance: SODIUM FLUORIDE
     Indication: Product used for unknown indication
  220. SOLU-MEDROL [Suspect]
     Active Substance: METHYLPREDNISOLONE SODIUM SUCCINATE
     Indication: Product used for unknown indication
     Route: 048
  221. SULFASALAZINE [Suspect]
     Active Substance: SULFASALAZINE
     Indication: Rheumatoid arthritis
     Route: 058
  222. SULFASALAZINE [Suspect]
     Active Substance: SULFASALAZINE
     Route: 058
  223. SULFASALAZINE [Suspect]
     Active Substance: SULFASALAZINE
     Route: 058
  224. SULFASALAZINE [Suspect]
     Active Substance: SULFASALAZINE
     Route: 058
  225. SULFASALAZINE [Suspect]
     Active Substance: SULFASALAZINE
     Route: 058
  226. SULFASALAZINE [Suspect]
     Active Substance: SULFASALAZINE
     Route: 058
  227. SULFASALAZINE [Suspect]
     Active Substance: SULFASALAZINE
     Dosage: 1000 MG BID
     Route: 048
  228. VITAMIN A [Suspect]
     Active Substance: VITAMIN A
     Indication: Rheumatoid arthritis
  229. VITAMIN A [Suspect]
     Active Substance: VITAMIN A
     Route: 048
  230. VITAMIN B1 [Suspect]
     Active Substance: THIAMINE HYDROCHLORIDE
     Indication: Product used for unknown indication
  231. COSENTYX [Concomitant]
     Active Substance: SECUKINUMAB
     Indication: Product used for unknown indication
  232. CAFFEINE [Concomitant]
     Active Substance: CAFFEINE
     Indication: Product used for unknown indication
  233. DESOGESTREL\ETHINYL ESTRADIOL [Concomitant]
     Active Substance: DESOGESTREL\ETHINYL ESTRADIOL
     Indication: Product used for unknown indication
  234. ATIVAN [Concomitant]
     Active Substance: LORAZEPAM
     Indication: Product used for unknown indication
  235. CODEINE [Concomitant]
     Active Substance: CODEINE
     Indication: Product used for unknown indication
  236. LORAZEPAM [Concomitant]
     Active Substance: LORAZEPAM
     Indication: Product used for unknown indication
  237. TEMAZEPAM [Concomitant]
     Active Substance: TEMAZEPAM
     Indication: Product used for unknown indication
  238. ZESTRIL [Concomitant]
     Active Substance: LISINOPRIL
  239. DICLOFENAC SODIUM [Suspect]
     Active Substance: DICLOFENAC SODIUM
     Indication: Product used for unknown indication
  240. NAPROXEN [Suspect]
     Active Substance: NAPROXEN
     Indication: Product used for unknown indication
  241. OXYCODONE [Suspect]
     Active Substance: OXYCODONE
     Indication: Product used for unknown indication
  242. LEFLUNOMIDE [Suspect]
     Active Substance: LEFLUNOMIDE
     Indication: Product used for unknown indication
  243. PANTOPRAZOLE SODIUM [Suspect]
     Active Substance: PANTOPRAZOLE SODIUM
     Indication: Product used for unknown indication
  244. ACETAMINOPHEN [Suspect]
     Active Substance: ACETAMINOPHEN
     Indication: Product used for unknown indication

REACTIONS (36)
  - Type 2 diabetes mellitus [Fatal]
  - Abdominal discomfort [Fatal]
  - Arthralgia [Fatal]
  - Adverse drug reaction [Fatal]
  - Blood cholesterol increased [Fatal]
  - Alopecia [Fatal]
  - Adverse event [Fatal]
  - Weight increased [Fatal]
  - Infusion related reaction [Fatal]
  - C-reactive protein increased [Fatal]
  - Condition aggravated [Fatal]
  - Decreased appetite [Fatal]
  - Dizziness [Fatal]
  - Drug ineffective [Fatal]
  - Drug intolerance [Fatal]
  - Fatigue [Fatal]
  - Fibromyalgia [Fatal]
  - General physical health deterioration [Fatal]
  - Headache [Fatal]
  - Helicobacter infection [Fatal]
  - Hepatic enzyme increased [Fatal]
  - Hypertension [Fatal]
  - Hypoaesthesia [Fatal]
  - Mobility decreased [Fatal]
  - Nasopharyngitis [Fatal]
  - Osteoarthritis [Fatal]
  - Pruritus [Fatal]
  - Pyrexia [Fatal]
  - Road traffic accident [Fatal]
  - Sciatica [Fatal]
  - Sinusitis [Fatal]
  - Sleep disorder due to general medical condition, insomnia type [Fatal]
  - Stomatitis [Fatal]
  - Swelling [Fatal]
  - Urticaria [Fatal]
  - Vomiting [Fatal]
